FAERS Safety Report 5934779-4 (Version None)
Quarter: 2008Q4

REPORT INFORMATION
  Report Type: 
  Country: None (occurrence: None)
  Receive Date: 20081010
  Receipt Date: 20080513
  Transmission Date: 20090506
  Serious: Yes (Death)
  Sender: FDA-Public Use
  Company Number: 2008SP009032

PATIENT
  Age: 27 Year
  Sex: Female

DRUGS (1)
  1. TEMODAR [Suspect]
     Indication: PINEAL NEOPLASM
     Dosage: 20 MG UNK

REACTIONS (2)
  - DISEASE PROGRESSION [None]
  - UNDERDOSE [None]
